FAERS Safety Report 9482543 (Version 2)
Quarter: 2013Q3

REPORT INFORMATION
  Report Type: Spontaneous
  Country: US (occurrence: US)
  Receive Date: 20130828
  Receipt Date: 20130913
  Transmission Date: 20140515
  Serious: No
  Sender: FDA-Public Use
  Company Number: US-TEVA-428837USA

PATIENT
  Age: 25 Year
  Sex: Female
  Weight: 67.65 kg

DRUGS (2)
  1. PARAGARD 380A [Suspect]
     Indication: CONTRACEPTION
     Route: 015
     Dates: start: 20130130, end: 20130822
  2. ORTHO NOVUM [Concomitant]
     Indication: OVARIAN CYST
     Dates: start: 20130726

REACTIONS (5)
  - Pelvic pain [Recovered/Resolved]
  - Ovarian cyst [Recovered/Resolved]
  - Uterine spasm [Unknown]
  - Device expulsion [Recovered/Resolved]
  - Menorrhagia [Unknown]
